FAERS Safety Report 9179995 (Version 1)
Quarter: 2012Q4

REPORT INFORMATION
  Report Type: 
  Country: US (occurrence: US)
  Receive Date: 20121029
  Receipt Date: 20121029
  Transmission Date: 20130627
  Serious: No
  Sender: FDA-Public Use
  Company Number: US-AMGEN-USASP2012053957

PATIENT
  Age: 73 Year
  Sex: Female
  Weight: 87.27 kg

DRUGS (4)
  1. ENBREL [Suspect]
     Indication: PRODUCT USED FOR UNKNOWN INDICATION
     Dosage: 50 mg, qwk
     Route: 058
  2. COREG CR [Concomitant]
     Dosage: 10 mg, UNK
  3. DETROL LA [Concomitant]
     Dosage: 4 mg, UNK
  4. NEXIUM                             /01479302/ [Concomitant]
     Dosage: 20 mg, UNK

REACTIONS (1)
  - Rash macular [Unknown]
